FAERS Safety Report 9684717 (Version 1)
Quarter: 2013Q4

REPORT INFORMATION
  Report Type: Spontaneous
  Country: US (occurrence: None)
  Receive Date: 20131108
  Receipt Date: 20131108
  Transmission Date: 20140711
  Serious: Yes (Hospitalization, Other)
  Sender: FDA-Public Use
  Company Number: AMAG201300155

PATIENT
  Age: 65 Year
  Sex: Female
  Weight: 91.5 kg

DRUGS (12)
  1. FERAHEME [Suspect]
     Indication: IRON DEFICIENCY ANAEMIA
     Dosage: 2 ML, (60 MG) SINGLE, IV PUSH
     Route: 042
     Dates: start: 20130912, end: 20130912
  2. ATORVASTATIN (ATORVASTATIN CALCIUM) [Concomitant]
  3. VITAMIN D (COLECALCIFEROL) [Concomitant]
  4. DOXYCYCLINE (DOXYCYCLINE HYDROCHLORIDE) [Concomitant]
  5. FERROUS SULFATE (FERROUS SULFATE) [Concomitant]
  6. INSULIN GLARGINE (INSULIN GLARGINE) [Concomitant]
  7. IRBESARTAN (IRBESARTAN) [Concomitant]
  8. VICTOZA (LIRAGLUTIDE) [Concomitant]
  9. LISINOPRIL (LISINOPRIL) [Concomitant]
  10. OMEPRAZOLE (OMEPRAZOLE) [Concomitant]
  11. PREGABALIN (PREGABALIN) [Concomitant]
  12. SODIUM BICARBONATE (SODIUM BICARBONATE) [Concomitant]

REACTIONS (5)
  - Anaphylactic reaction [None]
  - Unresponsive to stimuli [None]
  - Ventricular hypertrophy [None]
  - Respiratory failure [None]
  - Cardio-respiratory arrest [None]
